FAERS Safety Report 4870279-0 (Version None)
Quarter: 2005Q4

REPORT INFORMATION
  Report Type: 
  Country: None (occurrence: None)
  Receive Date: 20051228
  Receipt Date: 20051202
  Transmission Date: 20060501
  Serious: Yes (Hospitalization)
  Sender: FDA-Public Use
  Company Number: 2005S1009055

PATIENT
  Age: 65 Year
  Sex: Female

DRUGS (1)
  1. APOMORPHINE HYDROCHLORIDE (10 MG/ML) [Suspect]
     Indication: PARKINSON'S DISEASE
     Dosage: 6 MG/HR; SC
     Route: 058
     Dates: start: 20050123, end: 20050905

REACTIONS (1)
  - HAEMOGLOBIN DECREASED [None]
